FAERS Safety Report 17339282 (Version 1)
Quarter: 2020Q1

REPORT INFORMATION
  Report Type: Spontaneous
  Country: US (occurrence: US)
  Receive Date: 20200128
  Receipt Date: 20200128
  Transmission Date: 20200409
  Serious: Yes (Disabling, Other)
  Sender: FDA-Public Use
  Company Number: None

PATIENT
  Age: 38 Year
  Sex: Female
  Weight: 56.25 kg

DRUGS (8)
  1. ALBUTEROL INHALER [Concomitant]
     Active Substance: ALBUTEROL
  2. BOTOX COSMETIC [Suspect]
     Active Substance: ONABOTULINUMTOXINA
     Indication: BRUXISM
     Dosage: ?          QUANTITY:96 UNITS;OTHER FREQUENCY:ONCE;?
     Route: 030
     Dates: start: 20191218, end: 20191218
  3. ZOFRAN [Concomitant]
     Active Substance: ONDANSETRON HYDROCHLORIDE
  4. CLARITIN [Concomitant]
     Active Substance: LORATADINE
  5. TYLENOL [Concomitant]
     Active Substance: ACETAMINOPHEN
  6. FIORICET [Concomitant]
     Active Substance: ACETAMINOPHEN\BUTALBITAL\CAFFEINE
  7. PREDNISONE. [Concomitant]
     Active Substance: PREDNISONE
  8. BENADRYL [Concomitant]
     Active Substance: DIPHENHYDRAMINE HYDROCHLORIDE

REACTIONS (13)
  - Dry mouth [None]
  - Headache [None]
  - Dizziness [None]
  - Palpitations [None]
  - Nausea [None]
  - Dyspnoea [None]
  - Rash erythematous [None]
  - Head discomfort [None]
  - Vision blurred [None]
  - Fatigue [None]
  - Chills [None]
  - Hypersensitivity [None]
  - Pyrexia [None]

NARRATIVE: CASE EVENT DATE: 20191218
